FAERS Safety Report 5255342-7 (Version None)
Quarter: 2007Q1

REPORT INFORMATION
  Report Type: 
  Country: None (occurrence: None)
  Receive Date: 20070305
  Receipt Date: 20070227
  Transmission Date: 20070707
  Serious: Yes (Life-Threatening, Congenital Anomaly)
  Sender: FDA-Public Use
  Company Number: GB-GLAXOSMITHKLINE-B0460732A

PATIENT
  Age: 48 Year
  Sex: Male
  Weight: 82.6 kg

DRUGS (3)
  1. LAMOTRIGINE [Suspect]
     Indication: AFFECTIVE DISORDER
     Dosage: 100MG TWICE PER DAY
     Route: 048
     Dates: start: 20040303, end: 20070123
  2. FLUOXETINE [Concomitant]
     Dosage: 60MG PER DAY
     Route: 048
  3. RISPERDAL [Concomitant]
     Dosage: 1MG PER DAY
     Route: 048

REACTIONS (2)
  - TOOTH ABSCESS [None]
  - TOOTH LOSS [None]
